FAERS Safety Report 20336705 (Version 1)
Quarter: 2022Q1

REPORT INFORMATION
  Report Type: Spontaneous
  Country: US (occurrence: None)
  Receive Date: 20220114
  Receipt Date: 20220114
  Transmission Date: 20220423
  Serious: No
  Sender: FDA-Public Use
  Company Number: None

PATIENT
  Age: 50 Year
  Sex: Female
  Weight: 85.73 kg

DRUGS (1)
  1. COSENTYX [Suspect]
     Active Substance: SECUKINUMAB
     Indication: Psoriatic arthropathy
     Dosage: INJECT 300MG (2 PEN) SUBCUTANEOUSLY EVERY 4 WEEKS FOR  WEEKS  AS DIRECTED?
     Route: 058
     Dates: start: 202008

REACTIONS (1)
  - COVID-19 [None]
